FAERS Safety Report 18010373 (Version 2)
Quarter: 2020Q3

REPORT INFORMATION
  Report Type: Spontaneous
  Country: US (occurrence: US)
  Receive Date: 20200710
  Receipt Date: 20200721
  Transmission Date: 20201103
  Serious: Yes (Hospitalization, Other)
  Sender: FDA-Public Use
  Company Number: US-ELI_LILLY_AND_COMPANY-US202007000795

PATIENT
  Age: 56 Year
  Sex: Male

DRUGS (5)
  1. HUMALOG [Suspect]
     Active Substance: INSULIN LISPRO
     Dosage: 60 U, TID
     Route: 058
     Dates: start: 202007
  2. LANTUS [Concomitant]
     Active Substance: INSULIN GLARGINE
     Indication: TYPE 1 DIABETES MELLITUS
     Dosage: 30 U, EACH MORNING
  3. HUMALOG [Suspect]
     Active Substance: INSULIN LISPRO
     Indication: TYPE 1 DIABETES MELLITUS
     Dosage: UNK UNK, UNKNOWN
     Route: 058
     Dates: start: 2007
  4. LANTUS [Concomitant]
     Active Substance: INSULIN GLARGINE
     Dosage: 35 U, EACH EVENING
  5. HUMALOG [Suspect]
     Active Substance: INSULIN LISPRO
     Dosage: 30 U, TID
     Route: 058
     Dates: start: 202007

REACTIONS (13)
  - Ear infection [Recovering/Resolving]
  - Diabetic coma [Unknown]
  - Blood glucose decreased [Unknown]
  - Drug ineffective [Unknown]
  - Osteomyelitis [Unknown]
  - Diabetic complication [Unknown]
  - Vision blurred [Not Recovered/Not Resolved]
  - Peripheral swelling [Recovering/Resolving]
  - Somnolence [Unknown]
  - Skin discolouration [Unknown]
  - Pain in extremity [Recovering/Resolving]
  - Synovial cyst [Unknown]
  - Blood glucose increased [Not Recovered/Not Resolved]

NARRATIVE: CASE EVENT DATE: 2006
